FAERS Safety Report 25834535 (Version 1)
Quarter: 2025Q3

REPORT INFORMATION
  Report Type: Spontaneous
  Country: US (occurrence: US)
  Receive Date: 20250923
  Receipt Date: 20250923
  Transmission Date: 20251021
  Serious: Yes (Death, Other)
  Sender: AUROBINDO
  Company Number: US-AUROBINDO-AUR-APL-2025-047442

PATIENT
  Age: 65 Year
  Sex: Male

DRUGS (2)
  1. PREDNISONE [Suspect]
     Active Substance: PREDNISONE
     Indication: Haemolysis
     Dosage: 1 MICROGRAM/KILOGRAM, ONCE A DAY
     Route: 065
  2. CLADRIBINE [Suspect]
     Active Substance: CLADRIBINE
     Indication: BRAF V600E mutation positive
     Route: 042
     Dates: start: 20240905

REACTIONS (2)
  - Haemophagocytic lymphohistiocytosis [Fatal]
  - Diffuse large B-cell lymphoma [Unknown]
